FAERS Safety Report 5503391-3 (Version None)
Quarter: 2007Q4

REPORT INFORMATION
  Report Type: 
  Country: None (occurrence: None)
  Receive Date: 20071031
  Receipt Date: 20071012
  Transmission Date: 20080405
  Serious: Yes (Death)
  Sender: FDA-Public Use
  Company Number: IL-AMGEN-UK240856

PATIENT
  Age: 50 Year
  Sex: Male
  Weight: 75 kg

DRUGS (4)
  1. NEULASTIM [Suspect]
     Indication: CHEMOTHERAPY
     Route: 058
     Dates: start: 20070822
  2. CYCLOPHOSPHAMIDE [Concomitant]
     Route: 065
     Dates: start: 20070816, end: 20070816
  3. DOXORUBICIN HCL [Concomitant]
     Route: 065
     Dates: start: 20070816, end: 20070816
  4. PREDNISONE [Concomitant]
     Route: 065
     Dates: start: 20070816, end: 20070816

REACTIONS (6)
  - DEATH [None]
  - DYSPHAGIA [None]
  - DYSPNOEA [None]
  - ERYTHEMA [None]
  - EYE PRURITUS [None]
  - OCULAR HYPERAEMIA [None]
